FAERS Safety Report 19232221 (Version 2)
Quarter: 2021Q2

REPORT INFORMATION
  Report Type: Spontaneous
  Country: IT (occurrence: IT)
  Receive Date: 20210507
  Receipt Date: 20210517
  Transmission Date: 20210717
  Serious: Yes (Other)
  Sender: FDA-Public Use
  Company Number: IT-ACCORD-224393

PATIENT
  Age: 85 Year
  Sex: Female

DRUGS (4)
  1. IBANDRONIC ACID. [Suspect]
     Active Substance: IBANDRONIC ACID
     Indication: OSTEOPOROSIS
     Dates: end: 20201115
  2. LYRICA [Concomitant]
     Active Substance: PREGABALIN
  3. COUMADIN [Concomitant]
     Active Substance: WARFARIN SODIUM
  4. DELTACORTENE [Concomitant]
     Active Substance: PREDNISONE

REACTIONS (3)
  - Bone abscess [Unknown]
  - Fistula [Unknown]
  - Osteonecrosis of jaw [Unknown]

NARRATIVE: CASE EVENT DATE: 20210121
